FAERS Safety Report 13936233 (Version 7)
Quarter: 2017Q3

REPORT INFORMATION
  Report Type: Report from Study
  Country: CA (occurrence: CA)
  Receive Date: 20170905
  Receipt Date: 20170927
  Transmission Date: 20171127
  Serious: Yes (Other)
  Sender: FDA-Public Use
  Company Number: CA-GLAXOSMITHKLINE-CA2017GSK136491

PATIENT
  Age: 57 Year
  Sex: Male

DRUGS (7)
  1. NAPROXEN. [Concomitant]
     Active Substance: NAPROXEN
  2. DICLOFENAC SODIUM. [Suspect]
     Active Substance: DICLOFENAC SODIUM
     Indication: PRODUCT USED FOR UNKNOWN INDICATION
     Route: 065
  3. INDOMETHACIN. [Concomitant]
     Active Substance: INDOMETHACIN
  4. HUMALOG [Concomitant]
     Active Substance: INSULIN LISPRO
  5. VIMOVO [Concomitant]
     Active Substance: ESOMEPRAZOLE MAGNESIUM\NAPROXEN
  6. IBUPROFEN. [Concomitant]
     Active Substance: IBUPROFEN
  7. LANTUS [Concomitant]
     Active Substance: INSULIN GLARGINE

REACTIONS (7)
  - Skin lesion [Unknown]
  - Back pain [Unknown]
  - Nephrolithiasis [Not Recovered/Not Resolved]
  - Ankylosing spondylitis [Unknown]
  - Kidney infection [Recovering/Resolving]
  - Muscular weakness [Unknown]
  - Fat tissue increased [Unknown]

NARRATIVE: CASE EVENT DATE: 201708
